FAERS Safety Report 7388115-X (Version None)
Quarter: 2011Q2

REPORT INFORMATION
  Report Type: 
  Country: None (occurrence: None)
  Receive Date: 20110401
  Receipt Date: 20110318
  Transmission Date: 20111010
  Serious: Yes (Hospitalization)
  Sender: FDA-Public Use
  Company Number: AU-BAYER-201021796GPV

PATIENT
  Sex: Male
  Weight: 99 kg

DRUGS (9)
  1. SORAFENIB (RAF KINASE INHIBITOR) [Suspect]
     Indication: HEPATIC NEOPLASM MALIGNANT
     Route: 048
     Dates: start: 20100318
  2. ZESTRIL [Concomitant]
     Indication: HYPERTENSION
     Dosage: 20 MG (DAILY DOSE), QD, ORAL
     Route: 048
     Dates: start: 20000101
  3. BETALOC [Concomitant]
     Indication: HYPERTENSION
     Route: 048
     Dates: start: 20090909
  4. ADDITIONAL STUDY MEDICATION [Suspect]
     Indication: HEPATIC NEOPLASM MALIGNANT
  5. PROGOUT [Concomitant]
     Indication: GOUT
     Route: 048
     Dates: start: 20090909
  6. LOVAZA [Concomitant]
     Indication: SUPPLEMENTATION THERAPY
     Dosage: 4 DF (DAILY DOSE), QD, ORAL
     Route: 048
     Dates: start: 20050101
  7. INSULIN NOVORAPID [Concomitant]
     Indication: DIABETES MELLITUS
     Dosage: 48 IU (DAILY DOSE), , SUBCUTANEOUS
     Route: 058
     Dates: start: 20090909
  8. SOMAC [Concomitant]
     Indication: GASTROOESOPHAGEAL REFLUX DISEASE
     Dosage: 40 MG (DAILY DOSE), QD, ORAL
     Route: 048
     Dates: start: 20090909
  9. ASPIRIN [Concomitant]
     Indication: SUPPLEMENTATION THERAPY
     Dosage: 100 MG (DAILY DOSE), QD, ORAL
     Route: 048
     Dates: start: 20090909

REACTIONS (5)
  - DYSPEPSIA [None]
  - DIABETES MELLITUS [None]
  - LIVER FUNCTION TEST ABNORMAL [None]
  - ABDOMINAL PAIN [None]
  - FATIGUE [None]
